FAERS Safety Report 4819482-6 (Version None)
Quarter: 2005Q4

REPORT INFORMATION
  Report Type: 
  Country: None (occurrence: None)
  Receive Date: 20051031
  Receipt Date: 20050705
  Transmission Date: 20060501
  Serious: No
  Sender: FDA-Public Use
  Company Number: 2005PV000277

PATIENT
  Age: 45 Year
  Sex: Female
  Weight: 129.2752 kg

DRUGS (8)
  1. SYMLIN [Suspect]
     Indication: DIABETES MELLITUS NON-INSULIN-DEPENDENT
     Dosage: 120 MCG; TID; SC
     Route: 058
     Dates: start: 20050628
  2. APIDRA RAPID ACTING [Concomitant]
  3. INSULIN [Concomitant]
  4. VYTORIN [Concomitant]
  5. PROTONIX [Concomitant]
  6. ZYRTEC [Concomitant]
  7. ALTACE [Concomitant]
  8. TRIAMTERENE AND HYDROCHLOROTHIAZIDE [Concomitant]

REACTIONS (2)
  - DECREASED APPETITE [None]
  - WEIGHT DECREASED [None]
